FAERS Safety Report 17568240 (Version 2)
Quarter: 2020Q2

REPORT INFORMATION
  Report Type: Spontaneous
  Country: US (occurrence: US)
  Receive Date: 20200320
  Receipt Date: 20200512
  Transmission Date: 20200713
  Serious: Yes (Other)
  Sender: FDA-Public Use
  Company Number: US-PFIZER INC-2020121633

PATIENT
  Age: 73 Year
  Sex: Male

DRUGS (6)
  1. PEMBROLIZUMAB. [Concomitant]
     Active Substance: PEMBROLIZUMAB
     Dosage: UNK, CYCLIC
     Dates: start: 20191204
  2. HYDROXYUREA. [Concomitant]
     Active Substance: HYDROXYUREA
     Dosage: 1000 MG, 4 DAYS A WEEK
  3. INLYTA [Suspect]
     Active Substance: AXITINIB
     Dosage: 5 MG, 2X/DAY
  4. HYDROXYUREA. [Concomitant]
     Active Substance: HYDROXYUREA
     Dosage: 500 MG, DAILY
  5. HYDROXYUREA. [Concomitant]
     Active Substance: HYDROXYUREA
     Indication: POLYCYTHAEMIA VERA
     Dosage: 500 MG, 3 DAYS A WEEK
  6. PEMBROLIZUMAB. [Concomitant]
     Active Substance: PEMBROLIZUMAB
     Indication: LUNG ADENOCARCINOMA STAGE I
     Dosage: UNK, CYCLIC
     Dates: start: 20191111

REACTIONS (25)
  - Lung disorder [Unknown]
  - Fatigue [Unknown]
  - Dyspnoea [Unknown]
  - Dysphagia [Unknown]
  - Dysphonia [Unknown]
  - Arthralgia [Unknown]
  - Haematocrit decreased [Unknown]
  - Mental impairment [Unknown]
  - Hypertension [Unknown]
  - Oxygen saturation decreased [Unknown]
  - Malaise [Unknown]
  - Nausea [Unknown]
  - Back pain [Unknown]
  - Oedema peripheral [Recovering/Resolving]
  - Haemoglobin decreased [Unknown]
  - Weight decreased [Unknown]
  - Blood disorder [Unknown]
  - Depression [Unknown]
  - Platelet count decreased [Unknown]
  - Memory impairment [Unknown]
  - Constipation [Unknown]
  - Hyperlipidaemia [Unknown]
  - Stomatitis [Unknown]
  - White blood cell count decreased [Unknown]
  - Red blood cell count decreased [Unknown]
